FAERS Safety Report 5964865-4 (Version None)
Quarter: 2008Q4

REPORT INFORMATION
  Report Type: 
  Country: None (occurrence: None)
  Receive Date: 20081124
  Receipt Date: 20081124
  Transmission Date: 20090506
  Serious: Yes (Life-Threatening, Other)
  Sender: FDA-Public Use
  Company Number: None

PATIENT
  Age: 48 Year
  Sex: Female
  Weight: 94.3482 kg

DRUGS (1)
  1. CYMBALTA [Suspect]

REACTIONS (6)
  - AMNESIA [None]
  - BLINDNESS [None]
  - DIZZINESS [None]
  - HEADACHE [None]
  - RENAL IMPAIRMENT [None]
  - URINARY RETENTION [None]
